FAERS Safety Report 10214844 (Version 1)
Quarter: 2014Q2

REPORT INFORMATION
  Report Type: Report from Study
  Country: JP (occurrence: JP)
  Receive Date: 20140603
  Receipt Date: 20140603
  Transmission Date: 20141212
  Serious: Yes (Hospitalization, Other)
  Sender: FDA-Public Use
  Company Number: JP-JNJFOC-20140517935

PATIENT
  Age: 36 Year
  Sex: Male
  Weight: 65 kg

DRUGS (37)
  1. INTELENCE [Suspect]
     Indication: HIV INFECTION
     Route: 048
     Dates: start: 20080619
  2. TRUVADA [Suspect]
     Indication: HIV INFECTION
     Route: 048
     Dates: start: 20060316, end: 20120307
  3. PREZISTA [Suspect]
     Indication: HIV INFECTION
     Route: 048
     Dates: start: 20080619
  4. ISENTRESS [Concomitant]
     Indication: HIV INFECTION
     Route: 048
     Dates: start: 20080619
  5. NORVIR [Concomitant]
     Indication: HIV INFECTION
     Route: 048
     Dates: start: 20060316, end: 20080618
  6. NORVIR [Concomitant]
     Indication: HIV INFECTION
     Route: 048
     Dates: start: 20110608
  7. NORVIR [Concomitant]
     Indication: HIV INFECTION
     Route: 048
     Dates: start: 20080619, end: 20110607
  8. BAKTAR [Concomitant]
     Indication: PROPHYLAXIS
     Route: 048
     Dates: start: 20080401
  9. VIRAMUNE [Concomitant]
     Indication: HIV INFECTION
     Route: 048
     Dates: start: 20051122, end: 20051205
  10. VIRAMUNE [Concomitant]
     Indication: HIV INFECTION
     Route: 048
     Dates: start: 20051206, end: 20080618
  11. FUZEON [Concomitant]
     Indication: HIV INFECTION
     Route: 065
     Dates: start: 20060316, end: 20080715
  12. TIPRANAVIR [Concomitant]
     Indication: HIV INFECTION
     Route: 048
     Dates: start: 20060316, end: 20080618
  13. EPIVIR [Concomitant]
     Indication: HIV INFECTION
     Route: 048
     Dates: start: 19970716, end: 20020205
  14. EPIVIR [Concomitant]
     Indication: HIV INFECTION
     Route: 048
     Dates: start: 20120308
  15. EPIVIR [Concomitant]
     Indication: HIV INFECTION
     Route: 048
     Dates: start: 20031114, end: 20060315
  16. EPIVIR [Concomitant]
     Indication: HIV INFECTION
     Route: 048
     Dates: start: 20020306, end: 20030128
  17. EPIVIR [Concomitant]
     Indication: HIV INFECTION
     Route: 048
     Dates: start: 20020216, end: 20020305
  18. ZERIT [Concomitant]
     Indication: HIV INFECTION
     Route: 048
     Dates: start: 20020306, end: 20041114
  19. ZERIT [Concomitant]
     Indication: HIV INFECTION
     Route: 048
     Dates: start: 20001025, end: 20020305
  20. ZIAGEN [Concomitant]
     Indication: HIV INFECTION
     Route: 048
     Dates: start: 20001025, end: 20020205
  21. ZIAGEN [Concomitant]
     Indication: HIV INFECTION
     Route: 048
     Dates: start: 20020216, end: 20020305
  22. ZIAGEN [Concomitant]
     Indication: HIV INFECTION
     Route: 048
     Dates: start: 20020306, end: 20030128
  23. ZIAGEN [Concomitant]
     Indication: HIV INFECTION
     Route: 048
     Dates: start: 20031114, end: 20041114
  24. RETROVIR [Concomitant]
     Indication: HIV INFECTION
     Route: 048
     Dates: start: 20051122, end: 20060315
  25. RETROVIR [Concomitant]
     Indication: HIV INFECTION
     Route: 048
     Dates: start: 19960725, end: 20001024
  26. RETROVIR [Concomitant]
     Indication: HIV INFECTION
     Route: 048
     Dates: start: 19951122, end: 19960724
  27. VIDEX EC [Concomitant]
     Indication: HIV INFECTION
     Route: 048
     Dates: start: 20030129, end: 20031113
  28. CRIXIVAN [Concomitant]
     Indication: HIV INFECTION
     Route: 048
     Dates: start: 19990401, end: 20001024
  29. CRIXIVAN [Concomitant]
     Indication: HIV INFECTION
     Route: 048
     Dates: start: 19960802, end: 19970513
  30. CRIXIVAN [Concomitant]
     Indication: HIV INFECTION
     Route: 048
     Dates: start: 19970514, end: 19990331
  31. STOCRIN [Concomitant]
     Indication: HIV INFECTION
     Route: 048
     Dates: start: 20020206, end: 20020215
  32. VIREAD [Concomitant]
     Indication: HIV INFECTION
     Route: 048
     Dates: start: 20041115, end: 20060315
  33. KALETRA [Concomitant]
     Indication: HIV INFECTION
     Route: 048
     Dates: start: 20030129, end: 20031113
  34. KALETRA [Concomitant]
     Indication: HIV INFECTION
     Route: 048
     Dates: start: 20041115, end: 20060315
  35. VIDEX [Concomitant]
     Indication: HIV INFECTION
     Route: 048
     Dates: start: 20020206, end: 20020215
  36. VIDEX [Concomitant]
     Indication: HIV INFECTION
     Route: 048
     Dates: start: 19951207, end: 19960724
  37. VIDEX [Concomitant]
     Indication: HIV INFECTION
     Route: 048
     Dates: start: 19960725, end: 19970715

REACTIONS (7)
  - Diarrhoea [Recovered/Resolved]
  - Pyrexia [Recovered/Resolved]
  - Gastric ulcer [Not Recovered/Not Resolved]
  - Hypertriglyceridaemia [Not Recovered/Not Resolved]
  - Renal impairment [Recovered/Resolved]
  - Liver disorder [Recovered/Resolved]
  - Insomnia [Not Recovered/Not Resolved]
